FAERS Safety Report 12502277 (Version 1)
Quarter: 2016Q2

REPORT INFORMATION
  Report Type: Spontaneous
  Country: US (occurrence: US)
  Receive Date: 20160627
  Receipt Date: 20160627
  Transmission Date: 20160815
  Serious: No
  Sender: FDA-Public Use
  Company Number: US-ASTRAZENECA-2016SE66613

PATIENT
  Sex: Male

DRUGS (5)
  1. ASTHMANEPHRIN [Concomitant]
     Indication: EMERGENCY CARE EXAMINATION ABNORMAL
  2. ALBUTEROL. [Concomitant]
     Active Substance: ALBUTEROL
     Dosage: INHALER TWICE A DAY
     Route: 055
  3. ALBUTEROL. [Concomitant]
     Active Substance: ALBUTEROL
     Dosage: NEBULIZER EVERY 4 HOURS
  4. SYMBICORT [Suspect]
     Active Substance: BUDESONIDE\FORMOTEROL FUMARATE DIHYDRATE
     Route: 055
  5. SPIRIVA [Concomitant]
     Active Substance: TIOTROPIUM BROMIDE MONOHYDRATE

REACTIONS (5)
  - Chronic obstructive pulmonary disease [Unknown]
  - Bronchiectasis [Unknown]
  - Pulmonary fibrosis [Unknown]
  - Atelectasis [Unknown]
  - Exposure to chemical pollution [Unknown]
